FAERS Safety Report 12602507 (Version 1)
Quarter: 2016Q3

REPORT INFORMATION
  Report Type: Spontaneous
  Country: US (occurrence: US)
  Receive Date: 20160728
  Receipt Date: 20160728
  Transmission Date: 20161109
  Serious: No
  Sender: FDA-Public Use
  Company Number: US-BAUSCH-BL-2015-024733

PATIENT
  Sex: Female

DRUGS (3)
  1. ATORVASTATIN [Concomitant]
     Active Substance: ATORVASTATIN
     Indication: BLOOD CHOLESTEROL
     Dosage: 20 MG EVERY OTHER DAY
     Dates: start: 201505
  2. OPCON-A [Suspect]
     Active Substance: NAPHAZOLINE HYDROCHLORIDE\PHENIRAMINE MALEATE
     Indication: DRY EYE
     Dosage: INSTILLED ONE DROP INTO BOTH EYES ONCE DAILY
     Route: 047
     Dates: start: 201509, end: 2015
  3. OPCON-A [Suspect]
     Active Substance: NAPHAZOLINE HYDROCHLORIDE\PHENIRAMINE MALEATE
     Indication: HYPERSENSITIVITY

REACTIONS (2)
  - Eye irritation [Recovered/Resolved]
  - Hypoaesthesia eye [Recovered/Resolved]

NARRATIVE: CASE EVENT DATE: 2015
